FAERS Safety Report 25680056 (Version 1)
Quarter: 2025Q3

REPORT INFORMATION
  Report Type: Spontaneous
  Country: IN (occurrence: IN)
  Receive Date: 20250814
  Receipt Date: 20250814
  Transmission Date: 20251020
  Serious: Yes (Death, Other)
  Sender: PTC THERAPEUTICS
  Company Number: IN-PTC THERAPEUTICS INC.-IN-2025PTC000839

PATIENT
  Age: 21 Year
  Sex: Male

DRUGS (1)
  1. DEFLAZACORT [Suspect]
     Active Substance: DEFLAZACORT
     Indication: Arthralgia
     Dosage: 6 MILLIGRAM, BID
     Route: 065

REACTIONS (5)
  - Multiple organ dysfunction syndrome [Fatal]
  - Bacterial sepsis [Fatal]
  - Escherichia sepsis [Fatal]
  - Phaeohyphomycosis [Unknown]
  - Off label use [Unknown]
